FAERS Safety Report 24299165 (Version 3)
Quarter: 2024Q4

REPORT INFORMATION
  Report Type: Spontaneous
  Country: US (occurrence: US)
  Receive Date: 20240909
  Receipt Date: 20241018
  Transmission Date: 20250115
  Serious: Yes (Death)
  Sender: PFIZER
  Company Number: US-PFIZER INC-PV202400117583

PATIENT
  Age: 67 Year
  Sex: Female

DRUGS (1)
  1. TUKYSA [Suspect]
     Active Substance: TUCATINIB
     Dosage: 1 TABLET TWICE DAILY (EVERY 12 HOURS)

REACTIONS (2)
  - Death [Fatal]
  - Muscle spasms [Unknown]

NARRATIVE: CASE EVENT DATE: 20241014
